FAERS Safety Report 10018461 (Version 1)
Quarter: 2014Q1

REPORT INFORMATION
  Report Type: Spontaneous
  Country: US (occurrence: None)
  Receive Date: 20140314
  Receipt Date: 20140314
  Transmission Date: 20141002
  Serious: Yes (Disabling)
  Sender: FDA-Public Use
  Company Number: None

PATIENT
  Age: 44 Year
  Sex: Female
  Weight: 54.43 kg

DRUGS (1)
  1. BOTOX [Suspect]
     Indication: MIGRAINE
     Dosage: INJECTION INTO MULTIPLE SITES
     Dates: start: 20131121, end: 20140306

REACTIONS (2)
  - Neck pain [None]
  - Migraine [None]
